FAERS Safety Report 5407034-9 (Version None)
Quarter: 2007Q3

REPORT INFORMATION
  Report Type: 
  Country: None (occurrence: None)
  Receive Date: 20070807
  Receipt Date: 20070802
  Transmission Date: 20080115
  Serious: Yes (Hospitalization)
  Sender: FDA-Public Use
  Company Number: JP-AVENTIS-200712027JP

PATIENT
  Age: 67 Year
  Sex: Male
  Weight: 80.8 kg

DRUGS (4)
  1. TAXOTERE [Suspect]
     Route: 041
     Dates: start: 20070727, end: 20070727
  2. KYTRIL                             /01178101/ [Concomitant]
  3. DECADRON [Concomitant]
  4. SODIUM CHLORIDE [Concomitant]

REACTIONS (2)
  - DYSPNOEA [None]
  - LARYNGEAL OEDEMA [None]
